FAERS Safety Report 7389860-2 (Version None)
Quarter: 2011Q1

REPORT INFORMATION
  Report Type: 
  Country: None (occurrence: None)
  Receive Date: 20110325
  Receipt Date: 20110317
  Transmission Date: 20110831
  Serious: Yes (Other)
  Sender: FDA-Public Use
  Company Number: 2011SP012770

PATIENT
  Age: 47 Year
  Sex: Male

DRUGS (1)
  1. HEPARIN SODIUM [Suspect]
     Indication: PRODUCT USED FOR UNKNOWN INDICATION

REACTIONS (2)
  - TRANSAMINASES INCREASED [None]
  - HEPATOTOXICITY [None]
